FAERS Safety Report 20867567 (Version 1)
Quarter: 2022Q2

REPORT INFORMATION
  Report Type: Spontaneous
  Country: US (occurrence: US)
  Receive Date: 20220524
  Receipt Date: 20220524
  Transmission Date: 20220721
  Serious: Yes (Other)
  Sender: FDA-Public Use
  Company Number: US-PFIZER INC-202200711621

PATIENT
  Age: 51 Year
  Sex: Female
  Weight: 53.07 kg

DRUGS (1)
  1. IBRANCE [Suspect]
     Active Substance: PALBOCICLIB
     Dosage: 100 MG, CYCLIC, [21 DAYS, AND 7 DAYS OFF]
     Dates: start: 20220408

REACTIONS (1)
  - Neutrophil count decreased [Unknown]
